FAERS Safety Report 5917548-0 (Version None)
Quarter: 2008Q4

REPORT INFORMATION
  Report Type: 
  Country: None (occurrence: None)
  Receive Date: 20081010
  Receipt Date: 20081010
  Transmission Date: 20090506
  Serious: Yes (Disabling)
  Sender: FDA-Public Use
  Company Number: None

PATIENT
  Sex: Male
  Weight: 70.7611 kg

DRUGS (6)
  1. AMIODARONE HCL [Suspect]
     Indication: CHRONIC OBSTRUCTIVE PULMONARY DISEASE
     Dosage: 200MG QD ORAL
     Route: 048
     Dates: start: 20080301, end: 20080701
  2. AMIODARONE HCL [Suspect]
     Indication: CORONARY ARTERY BYPASS
     Dosage: 200MG QD ORAL
     Route: 048
     Dates: start: 20080301, end: 20080701
  3. AMIODARONE HCL [Suspect]
     Indication: MYOCARDIAL INFARCTION
     Dosage: 200MG QD ORAL
     Route: 048
     Dates: start: 20080301, end: 20080701
  4. SIMVASTATIN [Suspect]
     Indication: CHRONIC OBSTRUCTIVE PULMONARY DISEASE
     Dosage: 20MG QD AT BEDTIME ORAL
     Route: 048
     Dates: start: 20080301
  5. SIMVASTATIN [Suspect]
     Indication: CORONARY ARTERY BYPASS
     Dosage: 20MG QD AT BEDTIME ORAL
     Route: 048
     Dates: start: 20080301
  6. SIMVASTATIN [Suspect]
     Indication: MYOCARDIAL INFARCTION
     Dosage: 20MG QD AT BEDTIME ORAL
     Route: 048
     Dates: start: 20080301

REACTIONS (3)
  - HYPOAESTHESIA [None]
  - MUSCULAR WEAKNESS [None]
  - PAIN IN EXTREMITY [None]
